FAERS Safety Report 6731731-6 (Version None)
Quarter: 2010Q2

REPORT INFORMATION
  Report Type: 
  Country: None (occurrence: None)
  Receive Date: 20100514
  Receipt Date: 20100503
  Transmission Date: 20101027
  Serious: Yes (Hospitalization, Other)
  Sender: FDA-Public Use
  Company Number: 007382

PATIENT
  Sex: Male
  Weight: 87.2 kg

DRUGS (6)
  1. CERTOLIZUMAB PEGOL [Suspect]
     Indication: RHEUMATOID ARTHRITIS
     Dosage: 400 MG 1X/MONTH, STUDY CDP870-0587-011 SUBCUTANEOUS, 400 MG 1X/MOTH SUBCUTANEOUS
     Route: 058
     Dates: start: 20030806, end: 20031223
  2. CERTOLIZUMAB PEGOL [Suspect]
     Indication: RHEUMATOID ARTHRITIS
     Dosage: 400 MG 1X/MONTH, STUDY CDP870-0587-011 SUBCUTANEOUS, 400 MG 1X/MOTH SUBCUTANEOUS
     Route: 058
     Dates: start: 20040121, end: 20091210
  3. VICODIN [Concomitant]
  4. METHOTREXATE [Concomitant]
  5. PREDNISONE [Concomitant]
  6. BACTRIM DS [Concomitant]

REACTIONS (2)
  - PNEUMONIA STAPHYLOCOCCAL [None]
  - SEPSIS [None]
